FAERS Safety Report 7008865-4 (Version None)
Quarter: 2010Q3

REPORT INFORMATION
  Report Type: 
  Country: None (occurrence: None)
  Receive Date: 20100923
  Receipt Date: 20100914
  Transmission Date: 20110219
  Serious: Yes (Hospitalization)
  Sender: FDA-Public Use
  Company Number: US-BIOGENIDEC-2010BI027444

PATIENT
  Age: 35 Year
  Sex: Female

DRUGS (1)
  1. TYSABRI [Suspect]
     Indication: MULTIPLE SCLEROSIS
     Route: 042
     Dates: start: 20080708

REACTIONS (9)
  - CENTRAL NERVOUS SYSTEM LESION [None]
  - CHEST PAIN [None]
  - ELECTRIC SHOCK [None]
  - FALL [None]
  - HYPOAESTHESIA [None]
  - JOINT SPRAIN [None]
  - MULTIPLE SCLEROSIS RELAPSE [None]
  - ROAD TRAFFIC ACCIDENT [None]
  - URINARY TRACT INFECTION [None]
